FAERS Safety Report 5880970-5 (Version None)
Quarter: 2008Q3

REPORT INFORMATION
  Report Type: 
  Country: None (occurrence: None)
  Receive Date: 20080912
  Receipt Date: 20080613
  Transmission Date: 20090109
  Serious: No
  Sender: FDA-Public Use
  Company Number: US-ABBOTT-08P-163-0457301-00

PATIENT
  Sex: Female
  Weight: 99.88 kg

DRUGS (1)
  1. HUMIRA [Suspect]
     Indication: CROHN'S DISEASE
     Dosage: LOADING DOSE
     Route: 058
     Dates: start: 20080606

REACTIONS (6)
  - FALL [None]
  - GAIT DISTURBANCE [None]
  - NAIL BED BLEEDING [None]
  - NAIL DISORDER [None]
  - PURULENT DISCHARGE [None]
  - SKIN EXFOLIATION [None]
